FAERS Safety Report 16634484 (Version 4)
Quarter: 2020Q2

REPORT INFORMATION
  Report Type: Other
  Country: GB (occurrence: GB)
  Receive Date: 20190726
  Receipt Date: 20200401
  Transmission Date: 20200713
  Serious: Yes (Death, Hospitalization, Disabling)
  Sender: FDA-Public Use
  Company Number: GB-CELLTRION INC.-2019GB022961

PATIENT

DRUGS (59)
  1. TRASTUZUMAB (UNKNOWN) [Suspect]
     Active Substance: TRASTUZUMAB
     Dosage: 420 MG, EVERY 3 WEEKS (MAINTENANCE DOSE)
     Route: 042
     Dates: start: 20170317, end: 20170417
  2. CYCLIZINE [Concomitant]
     Active Substance: CYCLIZINE
     Dosage: 50 MG
     Route: 042
     Dates: start: 20170816, end: 20171220
  3. SENNA [Concomitant]
     Active Substance: SENNA LEAF\SENNOSIDES\SENNOSIDES A AND B
     Indication: CONSTIPATION
     Dosage: 7.5 MG ONCE A DAY
     Route: 048
     Dates: start: 20190507
  4. SEPTRIN [Concomitant]
     Active Substance: SULFAMETHOXAZOLE\TRIMETHOPRIM
     Dosage: 480 MG, DAILY
     Route: 048
     Dates: start: 20170105, end: 20190306
  5. VENTOLIN [Concomitant]
     Active Substance: ALBUTEROL SULFATE
     Indication: COUGH
     Dosage: UNK
     Route: 050
     Dates: start: 20170517
  6. NYSTATIN. [Concomitant]
     Active Substance: NYSTATIN
     Dosage: 4 ML ONCE A DAY
     Route: 048
     Dates: start: 20190515, end: 20190522
  7. TRASTUZUMAB (UNKNOWN) [Suspect]
     Active Substance: TRASTUZUMAB
     Dosage: 598.5 MG (LOADING DOSE)
     Route: 042
     Dates: start: 20160523, end: 20160523
  8. TRASTUZUMAB (UNKNOWN) [Suspect]
     Active Substance: TRASTUZUMAB
     Dosage: 504 MG, EVERY 3 WEEKS (MAINTENANCE DOSE)
     Route: 042
     Dates: start: 20180802, end: 20180802
  9. SERETIDE [Concomitant]
     Active Substance: FLUTICASONE PROPIONATE\SALMETEROL XINAFOATE
     Indication: COUGH
     Dosage: UNK
     Route: 050
     Dates: start: 20170517
  10. ORAMORPH SR SUSTAINED RELEASE [Concomitant]
     Active Substance: MORPHINE SULFATE
     Indication: DECUBITUS ULCER
     Dosage: 5 MG, (INTERVAL: 1) AS NECESSARY
     Route: 048
     Dates: start: 20190516
  11. DOXYCLINE [DOXYCYCLINE] [Concomitant]
     Active Substance: DOXYCYCLINE
     Indication: LOWER RESPIRATORY TRACT INFECTION
     Dosage: UNK
     Route: 065
     Dates: start: 20170814
  12. NYSTATIN. [Concomitant]
     Active Substance: NYSTATIN
     Indication: ORAL CANDIDIASIS
     Dosage: 4 UNK, DAILY (100000 U)
     Route: 048
     Dates: start: 20190406, end: 20190413
  13. NYSTATIN. [Concomitant]
     Active Substance: NYSTATIN
     Dosage: 1 ML EVERY 0.25 DAY
     Route: 048
     Dates: start: 20190515, end: 20190522
  14. DOCUSATE SODIUM. [Concomitant]
     Active Substance: DOCUSATE SODIUM
     Indication: CONSTIPATION
     Dosage: 400 MG, DAILY
     Route: 048
     Dates: start: 20190406, end: 20190409
  15. CLARITHROMYCIN. [Concomitant]
     Active Substance: CLARITHROMYCIN
     Dosage: UNK
     Route: 065
     Dates: start: 20160510, end: 20160525
  16. TRASTUZUMAB (UNKNOWN) [Suspect]
     Active Substance: TRASTUZUMAB
     Dosage: 367.5 MG, EVERY 3 WEEKS (MAINTENANCE DOSE)
     Route: 042
     Dates: start: 20181025, end: 20181115
  17. TRASTUZUMAB EMTANSINE [Suspect]
     Active Substance: ADO-TRASTUZUMAB EMTANSINE
     Dosage: 240 MG, EVERY 3 WEEKS
     Route: 042
     Dates: start: 20180131, end: 20180427
  18. PARACETAMOL [Concomitant]
     Active Substance: ACETAMINOPHEN
     Indication: HEADACHE
     Dosage: UNK
     Route: 048
     Dates: start: 201801
  19. DEXAMETHASONE. [Concomitant]
     Active Substance: DEXAMETHASONE
     Indication: VISION BLURRED
     Dosage: 4 MG, DAILY
     Route: 048
     Dates: start: 20180214, end: 20180221
  20. METOCLOPRAMIDE. [Concomitant]
     Active Substance: METOCLOPRAMIDE
     Dosage: 10 MG
     Route: 048
     Dates: start: 20160407, end: 20160523
  21. LOPERAMIDE [Concomitant]
     Active Substance: LOPERAMIDE
     Dosage: 4 MG
     Route: 048
     Dates: start: 20180621
  22. LAXIDO [Concomitant]
     Active Substance: POLYETHYLENE GLYCOL 3350\POTASSIUM CHLORIDE\SODIUM BICARBONATE\SODIUM CHLORIDE
     Dosage: EVERY 0.5 DAY
     Route: 048
     Dates: start: 20190507, end: 20190526
  23. DOCUSATE SODIUM. [Concomitant]
     Active Substance: DOCUSATE SODIUM
     Dosage: 200 MG, EVERY 0.5 DAY
     Route: 048
     Dates: start: 20190406, end: 20190409
  24. TRASTUZUMAB (UNKNOWN) [Suspect]
     Active Substance: TRASTUZUMAB
     Dosage: 430.5 MG, EVERY 3 WEEKS (MAINTENANCE DOSE)
     Route: 042
     Dates: start: 20160923, end: 20160923
  25. TRASTUZUMAB (UNKNOWN) [Suspect]
     Active Substance: TRASTUZUMAB
     Dosage: 525 MG, EVERY 3 WEEKS (MAINTENANCE DOSE)
     Route: 042
     Dates: start: 20180621, end: 20180621
  26. CAPECITABINE. [Suspect]
     Active Substance: CAPECITABINE
     Dosage: 1650 MG
     Route: 048
     Dates: start: 20180621, end: 20180704
  27. CELECOXIB. [Concomitant]
     Active Substance: CELECOXIB
     Dosage: 100 MG, EVERY 0.5 DAY
     Route: 048
     Dates: start: 20190514
  28. DEXAMETHASONE. [Concomitant]
     Active Substance: DEXAMETHASONE
     Dosage: 2 MG
     Route: 048
     Dates: start: 20190403, end: 20190418
  29. FLUCONAZOLE. [Concomitant]
     Active Substance: FLUCONAZOLE
     Indication: ORAL CANDIDIASIS
     Dosage: 100 MG, DAILY
     Route: 048
     Dates: start: 20170224, end: 20170301
  30. NYSTATIN. [Concomitant]
     Active Substance: NYSTATIN
     Dosage: 100000 U EVERY 0.25 DAY
     Route: 048
     Dates: start: 20190406, end: 20190413
  31. TRASTUZUMAB (UNKNOWN) [Suspect]
     Active Substance: TRASTUZUMAB
     Dosage: 399 MG, EVERY 3 WEEKS (MAINTENANCE DOSE)
     Route: 042
     Dates: start: 20170523, end: 20170726
  32. TRASTUZUMAB (UNKNOWN) [Suspect]
     Active Substance: TRASTUZUMAB
     Dosage: 378 MG, EVERY 3 WEEKS (MAINTENANCE DOSE)
     Route: 042
     Dates: start: 20180823, end: 20181004
  33. PERTUZUMAB. [Suspect]
     Active Substance: PERTUZUMAB
     Dosage: 420 MG, EVERY 3 WEEKS (MAINTENANCE DOSE)
     Route: 042
     Dates: start: 20160613, end: 20170726
  34. ONDANSETRON [Concomitant]
     Active Substance: ONDANSETRON
     Dosage: 4 MG
     Route: 048
     Dates: start: 20180621, end: 20180802
  35. LANSOPRAZOLE. [Concomitant]
     Active Substance: LANSOPRAZOLE
     Dosage: 30 MG ONCE A DAY
     Route: 048
     Dates: start: 20190508, end: 20190516
  36. ENOXAPARIN [Concomitant]
     Active Substance: ENOXAPARIN
     Indication: PULMONARY EMBOLISM
     Dosage: 90 MG, DAILY
     Route: 058
     Dates: start: 20180727
  37. CODEINE PHOSPHATE [Concomitant]
     Active Substance: CODEINE PHOSPHATE
     Dosage: UNK
     Route: 065
     Dates: start: 2016
  38. DAPSONE. [Concomitant]
     Active Substance: DAPSONE
     Dosage: 100 MG, DAILY
     Route: 048
     Dates: start: 20190306
  39. OCTENILIN [ETHYLHEXYLGLYCERIN;GLYCEROL;OCTENIDINE HYDROCHLORIDE] [Concomitant]
     Indication: DECUBITUS ULCER
     Dosage: ONCE A DAY
     Route: 061
     Dates: start: 20190508
  40. CLOTRIMAZOLE. [Concomitant]
     Active Substance: CLOTRIMAZOLE
     Indication: CANDIDA INFECTION
     Dosage: 3 %, DAILY
     Route: 061
     Dates: start: 20190406, end: 20190413
  41. MOVICOL [Concomitant]
     Active Substance: POLYETHYLENE GLYCOL 3350\POTASSIUM CHLORIDE\SODIUM BICARBONATE\SODIUM CHLORIDE
     Dosage: 1 OTHER, EVERY 0.33 DAY
     Route: 048
     Dates: start: 20190410
  42. TRASTUZUMAB (UNKNOWN) [Suspect]
     Active Substance: TRASTUZUMAB
     Dosage: 399 MG, EVERY 3 WEEKS (MAINTENANCE DOSE)
     Route: 042
     Dates: start: 20160613, end: 20160831
  43. TRASTUZUMAB (UNKNOWN) [Suspect]
     Active Substance: TRASTUZUMAB
     Dosage: 325.5 MG, EVERY 3 WEEKS (MAINTENANCE DOSE)
     Route: 042
     Dates: start: 20190308, end: 20190308
  44. ONDANSETRON [Concomitant]
     Active Substance: ONDANSETRON
     Dosage: 8 MG
     Route: 048
     Dates: start: 20160613, end: 20160831
  45. DOCETAXEL. [Suspect]
     Active Substance: DOCETAXEL
     Dosage: 130 MG, EVERY 3 WEEKS
     Route: 042
     Dates: start: 20160407, end: 20160831
  46. PERTUZUMAB. [Suspect]
     Active Substance: PERTUZUMAB
     Dosage: 420 MG, EVERY 3 WEEKS (LOADING DOSE)
     Route: 042
     Dates: start: 20160613, end: 20170726
  47. TRASTUZUMAB EMTANSINE [Suspect]
     Active Substance: ADO-TRASTUZUMAB EMTANSINE
     Indication: BREAST CANCER METASTATIC
     Dosage: 220 MG, EVERY 3 WEEKS
     Route: 042
     Dates: start: 20170816, end: 20180110
  48. CAPECITABINE. [Suspect]
     Active Substance: CAPECITABINE
     Indication: BREAST CANCER METASTATIC
     Dosage: 1500 MG
     Route: 048
     Dates: start: 20180802, end: 20190308
  49. ONDANSETRON [Concomitant]
     Active Substance: ONDANSETRON
     Dosage: 8 MG
     Route: 048
     Dates: start: 20180110, end: 20180427
  50. DOMPERIDONE [Concomitant]
     Active Substance: DOMPERIDONE
     Dosage: 10 MG
     Route: 048
     Dates: start: 20170816, end: 20180427
  51. CLOTRIMAZOLE. [Concomitant]
     Active Substance: CLOTRIMAZOLE
     Dosage: 1 %, EVERY 0.33 DAY
     Route: 061
     Dates: start: 20190406, end: 20190413
  52. MOVICOL [Concomitant]
     Active Substance: POLYETHYLENE GLYCOL 3350\POTASSIUM CHLORIDE\SODIUM BICARBONATE\SODIUM CHLORIDE
     Indication: CONSTIPATION
     Dosage: 3 UNK, DAILY (1 OTHER)
     Route: 048
     Dates: start: 20190410
  53. TRASTUZUMAB (UNKNOWN) [Suspect]
     Active Substance: TRASTUZUMAB
     Dosage: 409.5 MG, EVERY 3 WEEKS (MAINTENANCE DOSE)
     Route: 042
     Dates: start: 20161014, end: 20170217
  54. TRASTUZUMAB (UNKNOWN) [Suspect]
     Active Substance: TRASTUZUMAB
     Dosage: 346.5 MG, EVERY 3 WEEKS (MAINTENANCE DOSE)
     Route: 042
     Dates: start: 20181206, end: 20190208
  55. PERTUZUMAB. [Suspect]
     Active Substance: PERTUZUMAB
     Dosage: 840 MG (LOADING DOSE)
     Route: 042
     Dates: start: 20160523, end: 20160523
  56. CELECOXIB. [Concomitant]
     Active Substance: CELECOXIB
     Indication: DECUBITUS ULCER
     Dosage: 200 MG ONCE DAILY
     Route: 048
     Dates: start: 20190514
  57. DEXAMETHASONE. [Concomitant]
     Active Substance: DEXAMETHASONE
     Indication: PRODUCT USED FOR UNKNOWN INDICATION
     Dosage: 2 MG
     Route: 048
     Dates: start: 20180717
  58. METOCLOPRAMIDE. [Concomitant]
     Active Substance: METOCLOPRAMIDE
     Dosage: 10 MG
     Route: 048
     Dates: start: 20180802, end: 20190308
  59. LAXIDO [Concomitant]
     Active Substance: POLYETHYLENE GLYCOL 3350\POTASSIUM CHLORIDE\SODIUM BICARBONATE\SODIUM CHLORIDE
     Indication: CONSTIPATION
     Dosage: 2 DOSES ONCE A DAY
     Route: 048
     Dates: start: 20190507, end: 20190526

REACTIONS (4)
  - Pain in extremity [Recovered/Resolved]
  - Death [Fatal]
  - Groin pain [Not Recovered/Not Resolved]
  - Arthralgia [Not Recovered/Not Resolved]

NARRATIVE: CASE EVENT DATE: 20160801
